FAERS Safety Report 10775260 (Version 2)
Quarter: 2015Q1

REPORT INFORMATION
  Report Type: Spontaneous
  Country: DE (occurrence: DE)
  Receive Date: 20150209
  Receipt Date: 20150213
  Transmission Date: 20150721
  Serious: Yes (Hospitalization, Disabling, Other)
  Sender: FDA-Public Use
  Company Number: DE-SA-2015SA013034

PATIENT
  Age: 67 Year
  Sex: Male
  Weight: 72 kg

DRUGS (11)
  1. RIVAROXABAN [Concomitant]
     Active Substance: RIVAROXABAN
  2. FUROSEMIDE. [Concomitant]
     Active Substance: FUROSEMIDE
  3. MYOZYME [Suspect]
     Active Substance: ALGLUCOSIDASE ALFA
     Indication: GLYCOGEN STORAGE DISEASE TYPE II
     Route: 042
     Dates: start: 2002
  4. REPAGLINIDE. [Concomitant]
     Active Substance: REPAGLINIDE
  5. DIGITOXIN [Concomitant]
     Active Substance: DIGITOXIN
  6. ATMADISC [Concomitant]
     Active Substance: FLUTICASONE PROPIONATE\SALMETEROL XINAFOATE
  7. BEROTEC [Concomitant]
     Active Substance: FENOTEROL HYDROBROMIDE
  8. ASPIRIN. [Concomitant]
     Active Substance: ASPIRIN
  9. KALINOR [Concomitant]
     Active Substance: POTASSIUM CITRATE
  10. TIOTROPIUM BROMIDE [Concomitant]
     Active Substance: TIOTROPIUM BROMIDE
  11. OMEPRAZOLE. [Concomitant]
     Active Substance: OMEPRAZOLE

REACTIONS (15)
  - Fungal infection [Unknown]
  - Metastases to kidney [Unknown]
  - Bronchial carcinoma [Not Recovered/Not Resolved]
  - Contrast media allergy [Unknown]
  - Dyspnoea [Unknown]
  - Fall [Unknown]
  - Bronchopneumonia [Unknown]
  - Retroperitoneal lymphadenopathy [Unknown]
  - Tachyarrhythmia [Unknown]
  - Sputum discoloured [Unknown]
  - Pain [Unknown]
  - Metastases to central nervous system [Unknown]
  - Renal cell carcinoma [Unknown]
  - Contusion [Unknown]
  - Cough [Unknown]

NARRATIVE: CASE EVENT DATE: 20141127
